FAERS Safety Report 19846596 (Version 1)
Quarter: 2021Q3

REPORT INFORMATION
  Report Type: Spontaneous
  Country: GB (occurrence: GB)
  Receive Date: 20210917
  Receipt Date: 20210917
  Transmission Date: 20211014
  Serious: Yes (Hospitalization)
  Sender: FDA-Public Use
  Company Number: GB-GLAXOSMITHKLINE-GBCH2021EME017879

PATIENT
  Sex: Female

DRUGS (3)
  1. PENICILLIN [Suspect]
     Active Substance: PENICILLIN
     Indication: PRODUCT USED FOR UNKNOWN INDICATION
     Dosage: UNK
  2. SEPTRIN [Suspect]
     Active Substance: SULFAMETHOXAZOLE\TRIMETHOPRIM
     Indication: TONSILLITIS
     Dosage: UNK
  3. IBUPROFEN. [Suspect]
     Active Substance: IBUPROFEN
     Indication: PRODUCT USED FOR UNKNOWN INDICATION
     Dosage: UNK

REACTIONS (10)
  - Nasopharyngitis [Unknown]
  - Swelling [Unknown]
  - Rash pruritic [Unknown]
  - Chills [Unknown]
  - Malaise [Unknown]
  - Feeling abnormal [Unknown]
  - Feeling hot [Unknown]
  - Drug hypersensitivity [Unknown]
  - Livedo reticularis [Unknown]
  - Rash [Unknown]
